FAERS Safety Report 8585609-6 (Version None)
Quarter: 2012Q2

REPORT INFORMATION
  Report Type: 
  Country: None (occurrence: None)
  Receive Date: 20120423
  Receipt Date: 20100127
  Transmission Date: 20120825
  Serious: Yes (Other)
  Sender: FDA-Public Use
  Company Number: PHEH2010US01198

PATIENT

DRUGS (1)
  1. EXJADE [Suspect]
     Indication: MYELODYSPLASTIC SYNDROME
     Dosage: 1500 MG DAILY, ORAL
     Route: 048
     Dates: start: 20090326

REACTIONS (2)
  - NEOPLASM MALIGNANT [None]
  - BONE MARROW TRANSPLANT [None]
